FAERS Safety Report 24413030 (Version 1)
Quarter: 2024Q4

REPORT INFORMATION
  Report Type: Report from Study
  Country: US (occurrence: US)
  Receive Date: 20241008
  Receipt Date: 20241008
  Transmission Date: 20250115
  Serious: Yes (Other)
  Sender: BAYER
  Company Number: US-BAYER-2024A128343

PATIENT
  Age: 77 Year
  Sex: Male

DRUGS (1)
  1. NUBEQA [Suspect]
     Active Substance: DAROLUTAMIDE
     Indication: Prostate cancer
     Dosage: 600 MG, BID
     Route: 048
     Dates: start: 20240301

REACTIONS (11)
  - Cardiovascular disorder [None]
  - Dyspnoea [Unknown]
  - Peripheral swelling [Recovering/Resolving]
  - Hypoaesthesia [None]
  - Weight increased [Recovering/Resolving]
  - Skin discolouration [None]
  - Irritability [Unknown]
  - Pressure of speech [Unknown]
  - Pain in extremity [None]
  - Fatigue [Unknown]
  - Product dose omission issue [None]
